FAERS Safety Report 17027506 (Version 2)
Quarter: 2022Q1

REPORT INFORMATION
  Report Type: Spontaneous
  Country: US (occurrence: US)
  Receive Date: 20191113
  Receipt Date: 20220206
  Transmission Date: 20220423
  Serious: No
  Sender: FDA-Public Use
  Company Number: US-BIOGEN-2019BI00779157

PATIENT
  Sex: Female

DRUGS (2)
  1. TECFIDERA [Suspect]
     Active Substance: DIMETHYL FUMARATE
     Indication: Multiple sclerosis
     Route: 065
  2. ZANTAC [Concomitant]
     Active Substance: RANITIDINE HYDROCHLORIDE
     Route: 065

REACTIONS (17)
  - Pain [Unknown]
  - Band sensation [Unknown]
  - Depression [Unknown]
  - Weight increased [Unknown]
  - Fatigue [Unknown]
  - Loss of control of legs [Unknown]
  - Paraesthesia [Unknown]
  - Abdominal pain upper [Unknown]
  - Nausea [Unknown]
  - Abdominal discomfort [Unknown]
  - Flushing [Unknown]
  - Dyspnoea [Unknown]
  - Abdominal pain [Recovered/Resolved]
  - Diarrhoea [Recovered/Resolved]
  - Dyspepsia [Recovered/Resolved]
  - Vomiting [Recovered/Resolved]
  - Dizziness [Unknown]
